FAERS Safety Report 6087041-6 (Version None)
Quarter: 2009Q1

REPORT INFORMATION
  Report Type: 
  Country: None (occurrence: None)
  Receive Date: 20090223
  Receipt Date: 20090216
  Transmission Date: 20090719
  Serious: Yes (Hospitalization, Disabling, Other)
  Sender: FDA-Public Use
  Company Number: PHEH2004US03586

PATIENT
  Sex: Female

DRUGS (28)
  1. AREDIA [Suspect]
     Indication: MULTIPLE MYELOMA
     Dosage: 90 MG/QMONTH
     Route: 042
     Dates: start: 19980119, end: 20010524
  2. AREDIA [Suspect]
     Indication: HYPERCALCAEMIA
  3. ZOMETA [Suspect]
     Indication: HYPERCALCAEMIA OF MALIGNANCY
     Dosage: UNK
  4. ZOMETA [Suspect]
     Indication: MULTIPLE MYELOMA
  5. PAXIL [Concomitant]
  6. K-DUR [Concomitant]
  7. MS CONTIN [Concomitant]
  8. VINCRISTINE [Concomitant]
  9. ADRIAMYCIN PFS [Concomitant]
  10. CYTOXAN [Concomitant]
  11. PREDNISONE [Concomitant]
  12. DECADRON [Concomitant]
     Dosage: ONE DOSE
  13. VALIUM [Concomitant]
     Dosage: 2 MG, UNK
  14. COUMADIN [Concomitant]
  15. TYLENOL W/ CODEINE NO. 3 [Concomitant]
  16. AXID [Concomitant]
     Dosage: 150 MG, UNK
  17. MULTI-VITAMINS [Concomitant]
  18. DIFLUCAN [Concomitant]
     Dosage: 200 MG, UNK
  19. KYTRIL [Concomitant]
     Dosage: 1 MG, UNK
  20. MELPHALAN [Concomitant]
  21. LASIX [Concomitant]
     Dosage: 20 MG, UNK
  22. ATIVAN [Concomitant]
     Dosage: 0.25 MG, UNK
  23. OXYCONTIN [Concomitant]
     Dosage: 10 MG, UNK
  24. QUININE SULFATE [Concomitant]
     Dosage: 500 MG, BID
  25. PIRAMIDON [Concomitant]
     Dosage: 250 MG, UNK
  26. HYDROCORTISONE [Concomitant]
  27. PLAVIX [Concomitant]
  28. OSCAL [Concomitant]

REACTIONS (49)
  - ANOREXIA [None]
  - BIOPSY BONE ABNORMAL [None]
  - BONE DEBRIDEMENT [None]
  - BONE DISORDER [None]
  - BONE MARROW TRANSPLANT [None]
  - CARDIAC ARREST [None]
  - CELLULITIS [None]
  - CHOLECYSTECTOMY [None]
  - CORONARY ARTERY BYPASS [None]
  - DENTAL ALVEOLAR ANOMALY [None]
  - DENTAL EXAMINATION ABNORMAL [None]
  - DIALYSIS [None]
  - DYSGEUSIA [None]
  - EDENTULOUS [None]
  - ENDOTRACHEAL INTUBATION [None]
  - HYPOKALAEMIA [None]
  - IMPAIRED HEALING [None]
  - INFECTION [None]
  - JAW FRACTURE [None]
  - JAW OPERATION [None]
  - JOINT CREPITATION [None]
  - JOINT DISLOCATION [None]
  - KLEBSIELLA INFECTION [None]
  - MITRAL VALVE REPLACEMENT [None]
  - NEUROPATHY PERIPHERAL [None]
  - OSTEOLYSIS [None]
  - OSTEOMYELITIS [None]
  - OSTEONECROSIS [None]
  - OSTEOPENIA [None]
  - OSTEOSCLEROSIS [None]
  - PAIN [None]
  - PAIN IN JAW [None]
  - PERIPHERAL VASCULAR DISORDER [None]
  - PLEURAL EFFUSION [None]
  - PSEUDOMONAS INFECTION [None]
  - PULMONARY CONGESTION [None]
  - PULMONARY OEDEMA [None]
  - SCOLIOSIS [None]
  - SEPSIS [None]
  - SOFT TISSUE DISORDER [None]
  - SPINAL COMPRESSION FRACTURE [None]
  - STEM CELL TRANSPLANT [None]
  - SWELLING FACE [None]
  - THROMBECTOMY [None]
  - THROMBOCYTOPENIA [None]
  - THROMBOSIS IN DEVICE [None]
  - TONGUE ULCERATION [None]
  - TRACHEOSTOMY [None]
  - X-RAY ABNORMAL [None]
